FAERS Safety Report 8340627-8 (Version None)
Quarter: 2012Q2

REPORT INFORMATION
  Report Type: 
  Country: None (occurrence: None)
  Receive Date: 20120507
  Receipt Date: 20120427
  Transmission Date: 20120825
  Serious: Yes (Disabling, Other)
  Sender: FDA-Public Use
  Company Number: US-ABBOTT-12P-163-0930174-00

PATIENT
  Sex: Female
  Weight: 92.162 kg

DRUGS (10)
  1. HUMIRA [Suspect]
     Indication: RHEUMATOID ARTHRITIS
     Route: 058
     Dates: start: 20040101
  2. FOLIC ACID [Concomitant]
     Indication: RHEUMATOID ARTHRITIS
  3. VESICARE [Concomitant]
     Indication: INCONTINENCE
  4. CALCIUM [Concomitant]
     Indication: BONE DISORDER
  5. VITAMIN D [Concomitant]
     Indication: RHEUMATOID ARTHRITIS
  6. OMEPRAZOLE [Concomitant]
     Indication: GASTRIC DISORDER
     Route: 048
  7. CELEXA [Concomitant]
     Indication: DEPRESSION
     Route: 048
  8. LEVOXYL [Concomitant]
     Indication: HYPOTHYROIDISM
  9. CELEBREX [Concomitant]
     Indication: RHEUMATOID ARTHRITIS
     Route: 048
  10. VITAMIN B COMPLEX CAP [Concomitant]
     Indication: RHEUMATOID ARTHRITIS

REACTIONS (6)
  - FOOT OPERATION [None]
  - SPINAL OPERATION [None]
  - BACK PAIN [None]
  - HYPERTENSION [None]
  - INJURY [None]
  - DISABILITY [None]
